FAERS Safety Report 9987115 (Version 1)
Quarter: 2014Q1

REPORT INFORMATION
  Report Type: Report from Study
  Country: US (occurrence: US)
  Receive Date: 20140307
  Receipt Date: 20140307
  Transmission Date: 20141002
  Serious: No
  Sender: FDA-Public Use
  Company Number: US-ABBVIE-13P-163-1080631-00

PATIENT
  Sex: Female
  Weight: 110.78 kg

DRUGS (4)
  1. HUMIRA [Suspect]
     Indication: PSORIASIS
     Dates: start: 201209, end: 201304
  2. HUMIRA [Suspect]
     Indication: PSORIATIC ARTHROPATHY
  3. LISINOPRIL/HCTZ [Concomitant]
     Indication: HYPERTENSION
  4. VITAMIN D [Concomitant]
     Indication: VITAMIN SUPPLEMENTATION

REACTIONS (4)
  - Joint swelling [Unknown]
  - Drug ineffective [Not Recovered/Not Resolved]
  - Local swelling [Unknown]
  - Connective tissue disorder [Not Recovered/Not Resolved]
